FAERS Safety Report 20204879 (Version 1)
Quarter: 2021Q4

REPORT INFORMATION
  Report Type: Spontaneous
  Country: FR (occurrence: FR)
  Receive Date: 20211220
  Receipt Date: 20211220
  Transmission Date: 20220303
  Serious: Yes (Hospitalization)
  Sender: FDA-Public Use
  Company Number: FR-SUN PHARMACEUTICAL INDUSTRIES LTD-2021RR-320962

PATIENT
  Age: 79 Year
  Sex: Male

DRUGS (4)
  1. ATORVASTATIN [Suspect]
     Active Substance: ATORVASTATIN
     Indication: Dyslipidaemia
     Dosage: 80 MILLIGRAM, DAILY
     Route: 048
     Dates: start: 2018, end: 20211018
  2. FUROSEMIDE [Suspect]
     Active Substance: FUROSEMIDE
     Indication: Oedema peripheral
     Dosage: UNK
     Route: 048
     Dates: start: 20211011, end: 20211024
  3. ELIQUIS [Suspect]
     Active Substance: APIXABAN
     Indication: Cardiac valve prosthesis user
     Dosage: 5 MILLIGRAM, BID
     Route: 048
     Dates: start: 202106
  4. CLOXACILLIN [Suspect]
     Active Substance: CLOXACILLIN
     Indication: Prosthetic valve endocarditis
     Dosage: 12 GRAM, DAILY
     Route: 042
     Dates: start: 20210919, end: 20211014

REACTIONS (2)
  - Rhabdomyolysis [Recovered/Resolved]
  - Cell death [Recovered/Resolved]

NARRATIVE: CASE EVENT DATE: 20211014
